FAERS Safety Report 11928042 (Version 1)
Quarter: 2016Q1

REPORT INFORMATION
  Report Type: Spontaneous
  Country: GB (occurrence: GB)
  Receive Date: 20160119
  Receipt Date: 20160119
  Transmission Date: 20160526
  Serious: Yes (Disabling, Other)
  Sender: FDA-Public Use
  Company Number: GB-GLAXOSMITHKLINE-GB2016004763

PATIENT
  Age: 40 Year
  Sex: Male

DRUGS (5)
  1. ROPINIROLE. [Suspect]
     Active Substance: ROPINIROLE
     Indication: RESTLESS LEGS SYNDROME
     Dosage: AT NIGHT FOR 3 DAYS THEN INCREASE TO 2 AT NIGHT
     Route: 048
     Dates: start: 20160106, end: 20160107
  2. PARACETAMOL [Concomitant]
     Active Substance: ACETAMINOPHEN
  3. MORPHINE [Concomitant]
     Active Substance: MORPHINE
  4. BOOTS PARACETAMOL + CODEINE [Concomitant]
  5. OMEPRAZOLE. [Concomitant]
     Active Substance: OMEPRAZOLE

REACTIONS (2)
  - Tourette^s disorder [Unknown]
  - Dyskinesia [Unknown]

NARRATIVE: CASE EVENT DATE: 20160106
